FAERS Safety Report 9950327 (Version 1)
Quarter: 2014Q1

REPORT INFORMATION
  Report Type: Spontaneous
  Country: CA (occurrence: CA)
  Receive Date: 20140304
  Receipt Date: 20140304
  Transmission Date: 20141002
  Serious: Yes (Hospitalization)
  Sender: FDA-Public Use
  Company Number: CA-MALLINCKRODT-T201401411

PATIENT
  Age: 27 Year
  Sex: Male

DRUGS (1)
  1. METHADOSE [Suspect]
     Indication: PRODUCT USED FOR UNKNOWN INDICATION
     Dosage: 60 MG, SINGLE
     Route: 048

REACTIONS (1)
  - Drug dispensing error [Recovered/Resolved]
